FAERS Safety Report 4438869-7 (Version None)
Quarter: 2004Q3

REPORT INFORMATION
  Report Type: 
  Country: None (occurrence: None)
  Receive Date: 20040830
  Receipt Date: 20040820
  Transmission Date: 20050211
  Serious: Yes (Hospitalization)
  Sender: FDA-Public Use
  Company Number: US-JNJFOC-20040600328

PATIENT
  Age: 69 Year
  Sex: Female
  Weight: 95.709 kg

DRUGS (12)
  1. ACETAMINOPHEN [Suspect]
     Indication: BACK PAIN
     Dosage: 1000 MG, 4 IN 1 DAY, ORAL
     Route: 048
     Dates: start: 19990101, end: 20030401
  2. SYNTHROID [Concomitant]
  3. COUMADIN [Concomitant]
  4. DIGOXIN [Concomitant]
  5. DITROPAN XL [Concomitant]
  6. TRANXENE [Concomitant]
  7. ATENOLOL [Concomitant]
  8. ALLOPURINOL [Concomitant]
  9. SPIRONOLACTONE [Concomitant]
  10. GLYBURIDE [Concomitant]
  11. CYCLOBENZAPRINE HCL [Concomitant]
  12. REGLAN [Concomitant]

REACTIONS (12)
  - ASCITES [None]
  - BACK PAIN [None]
  - BIOPSY LIVER ABNORMAL [None]
  - CHEST PAIN [None]
  - CONSTIPATION [None]
  - DIVERTICULUM INTESTINAL [None]
  - HEPATIC CIRRHOSIS [None]
  - HEPATIC FIBROSIS [None]
  - HEPATIC NECROSIS [None]
  - HEPATIC STEATOSIS [None]
  - HEPATITIS [None]
  - SPLENOMEGALY [None]
